FAERS Safety Report 9099268 (Version 1)
Quarter: 2013Q1

REPORT INFORMATION
  Report Type: Spontaneous
  Country: US (occurrence: US)
  Receive Date: 20130214
  Receipt Date: 20130214
  Transmission Date: 20140127
  Serious: No
  Sender: FDA-Public Use
  Company Number: US-009507513-1302USA006751

PATIENT
  Sex: Male

DRUGS (1)
  1. COPPERTONE SPORT PRO SERIES SPF 50 [Suspect]
     Indication: PRODUCT USED FOR UNKNOWN INDICATION
     Dosage: UNK, UNKNOWN
     Route: 048

REACTIONS (3)
  - Ocular hyperaemia [Not Recovered/Not Resolved]
  - Swelling [Not Recovered/Not Resolved]
  - Accidental exposure to product [Unknown]
